FAERS Safety Report 23841634 (Version 1)
Quarter: 2024Q2

REPORT INFORMATION
  Report Type: Spontaneous
  Country: US (occurrence: None)
  Receive Date: 20240509
  Receipt Date: 20240509
  Transmission Date: 20240716
  Serious: No
  Sender: FDA-Public Use
  Company Number: None

PATIENT
  Age: 70 Year
  Sex: Female
  Weight: 102.15 kg

DRUGS (24)
  1. DUPIXENT [Suspect]
     Active Substance: DUPILUMAB
     Indication: Asthma
     Dosage: OTHER QUANTITY : 1 INJECTION(S);?OTHER FREQUENCY : EVERY 2 WEEKS;?OTHER ROUTE : INJECTED INTO STOMAC
     Route: 050
     Dates: start: 20230722, end: 20240428
  2. Breztri inhaler [Concomitant]
  3. BUDESONIDE [Concomitant]
     Active Substance: BUDESONIDE
  4. GLYCOPYRROLATE [Concomitant]
     Active Substance: GLYCOPYRROLATE
  5. FORMOTEROL FUMARATE [Concomitant]
  6. Albuterole Sulfate [Concomitant]
  7. Albuterol Nebulizer [Concomitant]
  8. Azelastine HCI Nasal Spray [Concomitant]
  9. Fluticasone Proprionate Nasal Spray [Concomitant]
  10. MONTELUKAST [Concomitant]
  11. ALLEGRA [Concomitant]
  12. FAMOTIDINE [Concomitant]
  13. TACROLIMUS [Concomitant]
     Active Substance: TACROLIMUS
  14. PREDNISONE [Concomitant]
  15. CEFPROZIL [Concomitant]
  16. Hair, Skin + Nails w/biotin [Concomitant]
  17. Super Beets [Concomitant]
  18. Tumeric [Concomitant]
  19. CURCUMIN [Concomitant]
  20. OMEGA-3 FISH OIL [Concomitant]
  21. D-MANNOSE [Concomitant]
  22. One a Day Women^s 50+ Vitamin [Concomitant]
  23. UNISOM SLEEPTABS [Concomitant]
     Active Substance: DOXYLAMINE SUCCINATE
  24. DOXYLAMINE SUCCINATE [Concomitant]
     Active Substance: DOXYLAMINE SUCCINATE

REACTIONS (4)
  - Arthralgia [None]
  - Arthralgia [None]
  - Arthralgia [None]
  - Therapy interrupted [None]

NARRATIVE: CASE EVENT DATE: 20240430
